FAERS Safety Report 4382412-8 (Version None)
Quarter: 2004Q2

REPORT INFORMATION
  Report Type: 
  Country: None (occurrence: None)
  Receive Date: 20040617
  Receipt Date: 20040608
  Transmission Date: 20050107
  Serious: Yes (Hospitalization, Other)
  Sender: FDA-Public Use
  Company Number: 2004-05-1074

PATIENT
  Age: 6 Year
  Sex: Female

DRUGS (6)
  1. CELESTONE [Suspect]
     Indication: CHRONIC SINUSITIS
     Dosage: SEE IMAGE
     Dates: start: 20021115, end: 20040414
  2. CELESTONE [Suspect]
     Indication: CHRONIC SINUSITIS
     Dosage: SEE IMAGE
     Dates: start: 20040129, end: 20040414
  3. NASIVIN [Concomitant]
  4. CLARITHROMYCIN [Concomitant]
  5. MUCODYNE [Concomitant]
  6. EBASTINE [Concomitant]

REACTIONS (7)
  - ADENOIDECTOMY [None]
  - ADRENAL SUPPRESSION [None]
  - CUSHING'S SYNDROME [None]
  - EATING DISORDER [None]
  - IATROGENIC INJURY [None]
  - MUMPS [None]
  - TONSILLECTOMY [None]
